FAERS Safety Report 8502221-5 (Version None)
Quarter: 2012Q3

REPORT INFORMATION
  Report Type: 
  Country: None (occurrence: None)
  Receive Date: 20120711
  Receipt Date: 20120703
  Transmission Date: 20120928
  Serious: Yes (Hospitalization)
  Sender: FDA-Public Use
  Company Number: PHHO2012MY010100

PATIENT
  Sex: Female
  Weight: 66.8 kg

DRUGS (7)
  1. VINCRISTINE [Suspect]
     Indication: NON-HODGKIN'S LYMPHOMA
     Dosage: 2 MG, QD
     Route: 042
     Dates: start: 20120217
  2. CYCLOPHOSPHAMIDE [Suspect]
     Indication: NON-HODGKIN'S LYMPHOMA
     Dosage: 125 MG, QD
     Route: 042
     Dates: start: 20120217
  3. BLINDED MABTHERA [Suspect]
     Indication: NON-HODGKIN'S LYMPHOMA
     Dosage: CODE NOT BROKEN
     Route: 042
     Dates: start: 20120217
  4. BLINDED NO TREATMENT RECEIVED [Suspect]
     Indication: NON-HODGKIN'S LYMPHOMA
     Dosage: CODE NOT BROKEN
     Route: 042
     Dates: start: 20120217
  5. BLINDED GP2013 [Suspect]
     Indication: NON-HODGKIN'S LYMPHOMA
     Dosage: CODE NOT BROKEN
     Route: 042
     Dates: start: 20120217
  6. PREDNISOLONE [Suspect]
     Indication: NON-HODGKIN'S LYMPHOMA
     Dosage: 100 MG, QD
     Route: 048
     Dates: start: 20120217
  7. ALLOPURINOL [Concomitant]
     Indication: BLOOD URIC ACID INCREASED
     Dosage: 300 G, QD
     Dates: start: 20120622, end: 20120630

REACTIONS (1)
  - FEBRILE NEUTROPENIA [None]
